FAERS Safety Report 12284061 (Version 1)
Quarter: 2016Q2

REPORT INFORMATION
  Report Type: Spontaneous
  Country: US (occurrence: US)
  Receive Date: 20160419
  Receipt Date: 20160419
  Transmission Date: 20160815
  Serious: No
  Sender: FDA-Public Use
  Company Number: ALCN2016US002653

PATIENT
  Sex: Female

DRUGS (1)
  1. SIMBRINZA [Suspect]
     Active Substance: BRIMONIDINE TARTRATE\BRINZOLAMIDE
     Indication: INTRAOCULAR PRESSURE INCREASED
     Dosage: 1 GTT, TID
     Route: 047
     Dates: start: 20160412, end: 20160413

REACTIONS (1)
  - Eyelid oedema [Not Recovered/Not Resolved]

NARRATIVE: CASE EVENT DATE: 20160413
